FAERS Safety Report 10188313 (Version 1)
Quarter: 2014Q2

REPORT INFORMATION
  Report Type: Spontaneous
  Country: NL (occurrence: NL)
  Receive Date: 20140522
  Receipt Date: 20140522
  Transmission Date: 20141212
  Serious: Yes (Life-Threatening, Hospitalization, Other)
  Sender: FDA-Public Use
  Company Number: NL-UCBSA-121010

PATIENT
  Age: 61 Year
  Sex: Male
  Weight: 90 kg

DRUGS (7)
  1. KEPPRA [Suspect]
     Indication: EPILEPSY
     Route: 048
     Dates: end: 201308
  2. DEPAKINE CHRONO [Suspect]
     Indication: EPILEPSY
     Route: 048
     Dates: end: 201308
  3. LAMICTAL DISPERS [Suspect]
     Indication: EPILEPSY
     Route: 048
     Dates: end: 201308
  4. IBUPROFEN [Concomitant]
     Dosage: UNKNOWN MG
     Route: 048
     Dates: start: 197610, end: 20130825
  5. ACETYLSALICYLZUUR [Concomitant]
     Route: 048
     Dates: end: 2013
  6. PINDOLOL [Concomitant]
     Route: 048
  7. PINDOLOL [Concomitant]
     Route: 048

REACTIONS (6)
  - Paralysis [Recovered/Resolved with Sequelae]
  - Weight decreased [Unknown]
  - Toxicity to various agents [Unknown]
  - Convulsion [Recovered/Resolved]
  - Dysphagia [Unknown]
  - Incontinence [Unknown]
